FAERS Safety Report 22655903 (Version 1)
Quarter: 2023Q2

REPORT INFORMATION
  Report Type: Spontaneous
  Country: US (occurrence: None)
  Receive Date: 20230629
  Receipt Date: 20230629
  Transmission Date: 20230722
  Serious: Yes (Other)
  Sender: FDA-Public Use
  Company Number: None

PATIENT
  Age: 64 Year
  Sex: Female
  Weight: 74.84 kg

DRUGS (14)
  1. HYDROCORTISONE [Suspect]
     Active Substance: HYDROCORTISONE
     Indication: Cortisol decreased
     Dosage: FREQUENCY : DAILY;?
     Route: 048
  2. ARMOUR THYROID [Concomitant]
     Active Substance: THYROID, PORCINE
  3. MYRBETRIQ [Concomitant]
     Active Substance: MIRABEGRON
  4. ROBAXIN [Concomitant]
     Active Substance: METHOCARBAMOL
  5. ROBAXIN [Concomitant]
     Active Substance: METHOCARBAMOL
  6. OXYCODONE [Concomitant]
     Active Substance: OXYCODONE
  7. CYMBALTA [Concomitant]
     Active Substance: DULOXETINE HYDROCHLORIDE
  8. TRAZODONE [Concomitant]
     Active Substance: TRAZODONE HYDROCHLORIDE
  9. HYDRACORTISONE [Concomitant]
  10. CLONAZEPAM [Concomitant]
     Active Substance: CLONAZEPAM
  11. VITAMIN C [Concomitant]
     Active Substance: ASCORBIC ACID
  12. VITAMINS [Concomitant]
     Active Substance: VITAMINS
  13. TYLENOL [Concomitant]
     Active Substance: ACETAMINOPHEN
  14. NAPROXEN [Concomitant]
     Active Substance: NAPROXEN

REACTIONS (1)
  - Tooth loss [None]
